FAERS Safety Report 22182378 (Version 2)
Quarter: 2023Q2

REPORT INFORMATION
  Report Type: Spontaneous
  Country: CH (occurrence: CH)
  Receive Date: 20230406
  Receipt Date: 20230418
  Transmission Date: 20230722
  Serious: Yes (Other)
  Sender: FDA-Public Use
  Company Number: CH-TEVA-2023-CH-2873406

PATIENT
  Age: 47 Year
  Sex: Female

DRUGS (2)
  1. DISULFIRAM [Suspect]
     Active Substance: DISULFIRAM
     Indication: Alcoholism
     Dosage: 200 MILLIGRAM DAILY; ONCE A DAY
     Route: 065
     Dates: start: 20191218
  2. DISULFIRAM [Suspect]
     Active Substance: DISULFIRAM
     Dosage: 200 MG EVERY OTHER DAY
     Route: 065
     Dates: start: 20191229

REACTIONS (4)
  - Drug-induced liver injury [Recovered/Resolved]
  - Fatigue [Unknown]
  - Nausea [Unknown]
  - Abdominal discomfort [Unknown]

NARRATIVE: CASE EVENT DATE: 20191201
